FAERS Safety Report 8449676-2 (Version None)
Quarter: 2012Q2

REPORT INFORMATION
  Report Type: 
  Country: None (occurrence: None)
  Receive Date: 20120620
  Receipt Date: 20120613
  Transmission Date: 20120825
  Serious: No
  Sender: FDA-Public Use
  Company Number: US-PFIZER INC-2012144029

PATIENT
  Sex: Male
  Weight: 127 kg

DRUGS (1)
  1. CAVERJECT [Suspect]
     Indication: ERECTILE DYSFUNCTION
     Dosage: 40 UG, UNK
     Dates: start: 20100101

REACTIONS (2)
  - ERECTILE DYSFUNCTION [None]
  - DRUG INEFFECTIVE [None]
